FAERS Safety Report 8029231-9 (Version None)
Quarter: 2012Q1

REPORT INFORMATION
  Report Type: 
  Country: None (occurrence: None)
  Receive Date: 20120106
  Receipt Date: 20120105
  Transmission Date: 20120608
  Serious: Yes (Death)
  Sender: FDA-Public Use
  Company Number: PHEH2012US000650

PATIENT
  Sex: Male

DRUGS (6)
  1. VITAMIN D [Concomitant]
     Dosage: 400 U, UNK
  2. FINASTERIDE [Concomitant]
     Dosage: 5 MG, UNK
  3. ACETAMINOPHEN [Concomitant]
     Dosage: 500 MG, UNK
  4. TASIGNA [Suspect]
     Dosage: 2 DF, BID
     Route: 048
  5. LEVOTHYROXINE SODIUM [Concomitant]
     Dosage: 25 UG, UNK
  6. MULTIVITAMIN [Concomitant]

REACTIONS (1)
  - DEATH [None]
